FAERS Safety Report 14249102 (Version 5)
Quarter: 2018Q3

REPORT INFORMATION
  Report Type: Spontaneous
  Country: FR (occurrence: FR)
  Receive Date: 20171204
  Receipt Date: 20180708
  Transmission Date: 20181010
  Serious: Yes (Hospitalization, Other)
  Sender: FDA-Public Use
  Company Number: FR-BIOGEN-2017BI00490334

PATIENT
  Age: 58 Year
  Sex: Female

DRUGS (2)
  1. GILENYA [Suspect]
     Active Substance: FINGOLIMOD HYDROCHLORIDE
     Indication: RELAPSING-REMITTING MULTIPLE SCLEROSIS
     Route: 048
     Dates: start: 20141030, end: 20170401
  2. FAMPYRA [Suspect]
     Active Substance: DALFAMPRIDINE
     Indication: MULTIPLE SCLEROSIS
     Route: 048
     Dates: start: 20160701, end: 20160707

REACTIONS (17)
  - Upper limb fracture [Recovered/Resolved with Sequelae]
  - Metastases to central nervous system [Not Recovered/Not Resolved]
  - Fall [Recovered/Resolved with Sequelae]
  - Loss of consciousness [Unknown]
  - Epilepsy [Recovered/Resolved]
  - Lung adenocarcinoma stage IV [Not Recovered/Not Resolved]
  - Central nervous system lesion [Unknown]
  - Cough [Unknown]
  - Somnolence [Unknown]
  - Osteoporosis [Unknown]
  - Dyspnoea [Unknown]
  - Confusional state [Unknown]
  - Muscle rigidity [Unknown]
  - Coronary artery disease [Recovered/Resolved]
  - Lung disorder [Unknown]
  - Generalised tonic-clonic seizure [Recovered/Resolved]
  - Seizure [Unknown]

NARRATIVE: CASE EVENT DATE: 20151208
